FAERS Safety Report 13746426 (Version 1)
Quarter: 2017Q3

REPORT INFORMATION
  Report Type: Report from Study
  Country: None (occurrence: US)
  Receive Date: 20170712
  Receipt Date: 20170712
  Transmission Date: 20171127
  Serious: Yes (Other)
  Sender: FDA-Public Use
  Company Number: US-ABBVIE-17P-163-2031019-00

PATIENT
  Sex: Male

DRUGS (2)
  1. GUANFACINE. [Concomitant]
     Active Substance: GUANFACINE
     Indication: TOURETTE^S DISORDER
  2. MARINOL [Suspect]
     Active Substance: DRONABINOL
     Indication: TOURETTE^S DISORDER
     Dosage: TAKE 1 CAPSULE THREE TIMES A DAY
     Route: 048
     Dates: start: 2013

REACTIONS (1)
  - Cataract [Recovered/Resolved]
